FAERS Safety Report 22295582 (Version 1)
Quarter: 2023Q2

REPORT INFORMATION
  Report Type: Spontaneous
  Country: US (occurrence: US)
  Receive Date: 20230508
  Receipt Date: 20230508
  Transmission Date: 20230721
  Serious: Yes (Other)
  Sender: FDA-Public Use
  Company Number: US-ELI_LILLY_AND_COMPANY-US202305000303

PATIENT
  Sex: Female

DRUGS (3)
  1. INSULIN LISPRO [Suspect]
     Active Substance: INSULIN LISPRO
     Indication: Type 2 diabetes mellitus
     Dosage: UNK UNK, UNKNOWN
     Route: 058
     Dates: start: 2021
  2. LYUMJEV [Suspect]
     Active Substance: INSULIN LISPRO-AABC
     Indication: Type 2 diabetes mellitus
     Dosage: 18 U, TID
     Route: 058
  3. LYUMJEV [Suspect]
     Active Substance: INSULIN LISPRO-AABC
     Dosage: 18 U, TID
     Route: 058

REACTIONS (20)
  - Dementia Alzheimer^s type [Not Recovered/Not Resolved]
  - Myalgia [Not Recovered/Not Resolved]
  - Pain [Unknown]
  - Neuropathy peripheral [Not Recovered/Not Resolved]
  - Infusion site ulcer [Unknown]
  - Epiretinal membrane [Not Recovered/Not Resolved]
  - Mobility decreased [Not Recovered/Not Resolved]
  - Sciatica [Unknown]
  - Arthralgia [Not Recovered/Not Resolved]
  - Joint swelling [Not Recovered/Not Resolved]
  - Joint effusion [Unknown]
  - Skin odour abnormal [Not Recovered/Not Resolved]
  - Heart rate increased [Unknown]
  - Hyperhidrosis [Unknown]
  - General physical health deterioration [Not Recovered/Not Resolved]
  - Stress [Unknown]
  - Respiratory disorder [Unknown]
  - Memory impairment [Not Recovered/Not Resolved]
  - Hypersensitivity [Unknown]
  - Peripheral swelling [Unknown]
